FAERS Safety Report 21971490 (Version 3)
Quarter: 2023Q1

REPORT INFORMATION
  Report Type: Spontaneous
  Country: US (occurrence: US)
  Receive Date: 20230209
  Receipt Date: 20230322
  Transmission Date: 20230417
  Serious: Yes (Other)
  Sender: FDA-Public Use
  Company Number: US-CELLTRION INC.-2023US002498

PATIENT

DRUGS (2)
  1. INFLECTRA [Suspect]
     Active Substance: INFLIXIMAB-DYYB
     Indication: Rheumatoid arthritis
     Dosage: 200MG INFUSED ONCE, THEN TWO WEEKS AND THEN 4 WEEKS AFTER THAT
     Route: 041
     Dates: start: 202212
  2. FOSAMAX [Suspect]
     Active Substance: ALENDRONATE SODIUM
     Indication: Osteoporosis
     Dosage: UNK

REACTIONS (4)
  - Lupus pleurisy [Unknown]
  - Systemic lupus erythematosus [Unknown]
  - Therapeutic product effect incomplete [Unknown]
  - Overdose [Unknown]
